FAERS Safety Report 10358565 (Version 1)
Quarter: 2014Q3

REPORT INFORMATION
  Report Type: Report from Study
  Country: US (occurrence: US)
  Receive Date: 20140803
  Receipt Date: 20140803
  Transmission Date: 20150326
  Serious: Yes (Hospitalization)
  Sender: FDA-Public Use
  Company Number: US-ASTRAZENECA-2014SE54746

PATIENT
  Age: 605 Month
  Sex: Female
  Weight: 78.9 kg

DRUGS (13)
  1. ATENOLOL. [Suspect]
     Active Substance: ATENOLOL
     Indication: HYPERTENSION
     Route: 048
     Dates: start: 2008
  2. TYLENOL WITH CODEINE [Concomitant]
     Active Substance: ACETAMINOPHEN\CODEINE PHOSPHATE
     Indication: PAIN
     Dosage: EVERY 4 HOURS TID
     Route: 048
     Dates: start: 201403
  3. ALDACTAZIDE [Concomitant]
     Active Substance: HYDROCHLOROTHIAZIDE\SPIRONOLACTONE
     Indication: BLOOD PRESSURE ABNORMAL
     Dosage: 25/25MG DAILY
     Route: 048
     Dates: start: 201312
  4. LIPITOR [Concomitant]
     Active Substance: ATORVASTATIN CALCIUM
     Indication: BLOOD TRIGLYCERIDES ABNORMAL
     Route: 048
     Dates: start: 201407
  5. ATENOLOL. [Suspect]
     Active Substance: ATENOLOL
     Indication: PULSE ABNORMAL
     Route: 048
     Dates: start: 2008
  6. SEROQUEL XR [Suspect]
     Active Substance: QUETIAPINE FUMARATE
     Indication: MAJOR DEPRESSION
     Route: 048
     Dates: start: 2010, end: 20140725
  7. PAMELOR [Concomitant]
     Active Substance: NORTRIPTYLINE HYDROCHLORIDE
     Indication: ANTIDEPRESSANT THERAPY
     Route: 048
     Dates: start: 2012
  8. ALDACTAZIDE [Concomitant]
     Active Substance: HYDROCHLOROTHIAZIDE\SPIRONOLACTONE
     Indication: DIURETIC THERAPY
     Dosage: 25/25MG DAILY
     Route: 048
     Dates: start: 201312
  9. NEURONTIN [Concomitant]
     Active Substance: GABAPENTIN
     Indication: FIBROMYALGIA
     Route: 048
     Dates: start: 2012
  10. ROBAXIN [Concomitant]
     Active Substance: METHOCARBAMOL
     Indication: FIBROMYALGIA
     Route: 048
     Dates: start: 2011
  11. LIPITOR [Concomitant]
     Active Substance: ATORVASTATIN CALCIUM
     Indication: HYPERTENSION
     Route: 048
     Dates: start: 201407
  12. SEROQUEL XR [Suspect]
     Active Substance: QUETIAPINE FUMARATE
     Indication: MAJOR DEPRESSION
     Route: 048
     Dates: start: 20140725
  13. ROBAXIN [Concomitant]
     Active Substance: METHOCARBAMOL
     Indication: ARTHRITIS
     Route: 048
     Dates: start: 2011

REACTIONS (6)
  - Renal failure acute [Recovered/Resolved]
  - Panic attack [Recovering/Resolving]
  - Hypotension [Recovered/Resolved]
  - Intestinal stenosis [Recovered/Resolved]
  - Intentional product misuse [Not Recovered/Not Resolved]
  - Intestinal obstruction [Recovered/Resolved]

NARRATIVE: CASE EVENT DATE: 201308
